FAERS Safety Report 23461882 (Version 2)
Quarter: 2024Q1

REPORT INFORMATION
  Report Type: Spontaneous
  Country: TR (occurrence: None)
  Receive Date: 20240131
  Receipt Date: 20240209
  Transmission Date: 20240410
  Serious: Yes (Hospitalization, Other)
  Sender: FDA-Public Use
  Company Number: 2024A024890

PATIENT
  Sex: Male
  Weight: 17.2 kg

DRUGS (3)
  1. KOSELUGO [Suspect]
     Active Substance: SELUMETINIB
     Indication: Hypothalamo-pituitary disorder
     Dosage: 20 MG MORNING, 20 MG EVENING
     Route: 048
     Dates: start: 202202
  2. VINCRISTINE [Concomitant]
     Active Substance: VINCRISTINE
     Route: 051
  3. CARBOPLATIN [Concomitant]
     Active Substance: CARBOPLATIN
     Dosage: 1X342.0 MILIGRAM /DAILY
     Route: 051

REACTIONS (7)
  - Neoplasm progression [Unknown]
  - Hydrocephalus [Unknown]
  - Wrong technique in product usage process [Unknown]
  - Arachnoid cyst [Unknown]
  - Craniopharyngioma [Unknown]
  - Mastoiditis [Unknown]
  - Chronic sinusitis [Unknown]
